FAERS Safety Report 8286901 (Version 5)
Quarter: 2013Q3

REPORT INFORMATION
  Report Type: Spontaneous
  Country: US (occurrence: US)
  Receive Date: 20111213
  Receipt Date: 20130923
  Transmission Date: 20140515
  Serious: Yes (Hospitalization, Disabling, Other)
  Sender: FDA-Public Use
  Company Number: US-009507513-1112USA01239

PATIENT
  Sex: Female
  Weight: 71.67 kg

DRUGS (10)
  1. FOSAMAX [Suspect]
     Indication: OSTEOPOROSIS
     Dosage: 10 MG, QD
     Route: 048
     Dates: start: 19981116, end: 20010321
  2. FOSAMAX [Suspect]
     Indication: OSTEOPENIA
     Dosage: 35 MG, QW
     Route: 048
     Dates: start: 20010321, end: 200202
  3. FOSAMAX [Suspect]
     Dosage: 35 MG, QW
     Route: 048
     Dates: start: 200308, end: 20061222
  4. MK-9278 [Concomitant]
     Dosage: UNK UNK, QD
     Route: 048
  5. ASCORBIC ACID [Concomitant]
     Dosage: 500 MG, QD
     Route: 048
     Dates: start: 1998
  6. VITAMIN D (UNSPECIFIED) [Concomitant]
     Dosage: 800 IU, BID
     Route: 048
     Dates: start: 199801
  7. CALCIUM (UNSPECIFIED) [Concomitant]
     Dosage: 600 MG, QD
     Route: 048
     Dates: start: 1998
  8. OMEGA-3 MARINE TRIGLYCERIDES [Concomitant]
     Dosage: UNK UNK, QD
     Route: 048
  9. ACTONEL [Suspect]
     Indication: OSTEOPENIA
     Dosage: 35 MG, QW
     Route: 048
     Dates: start: 20061221, end: 20110116
  10. ACTONEL [Suspect]
     Indication: OSTEOPOROSIS

REACTIONS (42)
  - Femur fracture [Recovered/Resolved with Sequelae]
  - Ischaemic stroke [Unknown]
  - Cerebrovascular accident [Recovering/Resolving]
  - Atelectasis [Unknown]
  - Hypertension [Recovering/Resolving]
  - Bunion [Unknown]
  - Foot deformity [Unknown]
  - Foot deformity [Unknown]
  - Tendon rupture [Unknown]
  - Foot deformity [Unknown]
  - Bunion [Unknown]
  - Depression [Unknown]
  - Dysthymic disorder [Recovered/Resolved]
  - Tendonitis [Unknown]
  - Anaemia [Unknown]
  - Hyperglycaemia [Unknown]
  - Urinary tract infection [Unknown]
  - Mitral valve incompetence [Unknown]
  - Arteriosclerosis [Unknown]
  - Medical device site reaction [Unknown]
  - Joint dislocation [Unknown]
  - Foot deformity [Unknown]
  - Foot deformity [Unknown]
  - Tendonitis [Unknown]
  - Foot deformity [Unknown]
  - Synovitis [Unknown]
  - Foot deformity [Unknown]
  - Device issue [Unknown]
  - Fibula fracture [Recovered/Resolved]
  - Foot deformity [Recovered/Resolved]
  - Metatarsus primus varus [Recovered/Resolved]
  - Device dislocation [Unknown]
  - Osteoarthritis [Unknown]
  - Osteoarthritis [Unknown]
  - Osteitis [Unknown]
  - Joint dislocation [Unknown]
  - Spinal osteoarthritis [Unknown]
  - Hypersensitivity [Unknown]
  - Musculoskeletal discomfort [Unknown]
  - Arthralgia [Recovering/Resolving]
  - Dyspepsia [Unknown]
  - Hypersensitivity [Unknown]
